FAERS Safety Report 11331250 (Version 1)
Quarter: 2015Q3

REPORT INFORMATION
  Report Type: Spontaneous
  Country: US (occurrence: None)
  Receive Date: 20150730
  Receipt Date: 20150730
  Transmission Date: 20151125
  Serious: Yes (Life-Threatening, Other)
  Sender: FDA-Public Use
  Company Number: None

PATIENT
  Age: 70 Year
  Sex: Male
  Weight: 95.26 kg

DRUGS (1)
  1. BRILINTA [Suspect]
     Active Substance: TICAGRELOR
     Indication: THROMBOSIS PROPHYLAXIS
     Route: 048
     Dates: start: 20150708, end: 20150709

REACTIONS (6)
  - Miliaria [None]
  - Ear swelling [None]
  - Lip swelling [None]
  - Rash erythematous [None]
  - Eye swelling [None]
  - Swelling face [None]

NARRATIVE: CASE EVENT DATE: 20150709
